FAERS Safety Report 21575863 (Version 1)
Quarter: 2022Q4

REPORT INFORMATION
  Report Type: Spontaneous
  Country: PT (occurrence: PT)
  Receive Date: 20221110
  Receipt Date: 20221110
  Transmission Date: 20230112
  Serious: Yes (Other)
  Sender: FDA-Public Use
  Company Number: None

PATIENT
  Age: 35 Year
  Sex: Female

DRUGS (2)
  1. IBUPROFEN [Suspect]
     Active Substance: IBUPROFEN
     Indication: Product used for unknown indication
     Dosage: FORM STRENGTH : 600 MG, UNIT DOS : 600 MG , THERAPY END DATE : NASK
     Dates: start: 202004
  2. AMOXICILLIN\CLAVULANIC ACID [Suspect]
     Active Substance: AMOXICILLIN\CLAVULANIC ACID
     Indication: Product used for unknown indication
     Dosage: THERAPY END DATE : NASK
     Dates: start: 20200406

REACTIONS (7)
  - Nasal obstruction [Recovered/Resolved]
  - Perineal swelling [Recovered/Resolved]
  - Cough [Recovered/Resolved]
  - Angioedema [Recovered/Resolved]
  - Rhinorrhoea [Recovered/Resolved]
  - Sneezing [Recovered/Resolved]
  - Rash macular [Recovered/Resolved]

NARRATIVE: CASE EVENT DATE: 20200406
